FAERS Safety Report 24361001 (Version 2)
Quarter: 2024Q3

REPORT INFORMATION
  Report Type: Spontaneous
  Country: US (occurrence: US)
  Receive Date: 20240925
  Receipt Date: 20240925
  Transmission Date: 20241017
  Serious: Yes (Hospitalization)
  Sender: ROCHE
  Company Number: US-ROCHE-10000082988

PATIENT
  Age: 78 Year
  Sex: Male
  Weight: 96.2 kg

DRUGS (18)
  1. CELLCEPT [Suspect]
     Active Substance: MYCOPHENOLATE MOFETIL
     Indication: Gout
     Route: 048
     Dates: start: 20240312, end: 20240709
  2. KRYSTEXXA [Suspect]
     Active Substance: PEGLOTICASE
     Indication: Gout
     Route: 065
     Dates: start: 20240418, end: 20240709
  3. COLCHICINE [Suspect]
     Active Substance: COLCHICINE
     Indication: Gout
     Route: 065
     Dates: start: 20240312, end: 20240709
  4. CRESTOR [Concomitant]
     Active Substance: ROSUVASTATIN CALCIUM
     Dates: start: 20240901
  5. LOVENOX [Concomitant]
     Active Substance: ENOXAPARIN SODIUM
  6. ELIQUIS [Concomitant]
     Active Substance: APIXABAN
     Dates: start: 20230505
  7. Pacerone (Amiodarone hydrochloride) [Concomitant]
     Dates: start: 20230505
  8. ECOTRIN [Concomitant]
     Active Substance: ASPIRIN
  9. Betimol (Timolol)  Eye drops, 0.5 percent [Concomitant]
     Dates: start: 20240411
  10. Xalatan (Latanoprost)  Eye drops, 0.0005 percent [Concomitant]
     Dates: start: 20240305
  11. SYNTHROID [Concomitant]
     Active Substance: LEVOTHYROXINE SODIUM
     Route: 065
     Dates: start: 20240417
  12. Flomax (Tamsulosin hydrochloride)  Capsule [Concomitant]
     Dates: start: 20230308
  13. Antivert (Meclozine hydrochloride) Tablet [Concomitant]
     Dates: start: 20240509
  14. Glumetza (Metformin hydrochloride) Tablet [Concomitant]
  15. Toprol (Metoprolol succinate) Tablet [Concomitant]
     Dates: start: 20230308
  16. OMEPRAZOLE [Concomitant]
     Active Substance: OMEPRAZOLE
     Dates: start: 20230308
  17. Lasix (Furosemide sodium) Tablet [Concomitant]
     Dates: start: 20240621
  18. Entresto (Sacubitril, Valsartan) Tablet [Concomitant]
     Dates: start: 20240621

REACTIONS (6)
  - Hypervolaemia [Recovered/Resolved]
  - Dyspnoea [Recovered/Resolved]
  - Headache [Recovered/Resolved]
  - Dizziness [Recovered/Resolved]
  - Wheezing [Recovered/Resolved]
  - Oedema peripheral [Recovered/Resolved]
